FAERS Safety Report 21077789 (Version 5)
Quarter: 2024Q4

REPORT INFORMATION
  Report Type: Spontaneous
  Country: US (occurrence: US)
  Receive Date: 20220713
  Receipt Date: 20241126
  Transmission Date: 20250114
  Serious: Yes (Other)
  Sender: PFIZER
  Company Number: US-PFIZER INC-PV202200021979

PATIENT
  Age: 84 Year
  Sex: Female

DRUGS (3)
  1. IBRANCE [Suspect]
     Active Substance: PALBOCICLIB
     Indication: Breast cancer female
     Dosage: UNK
  2. IBRANCE [Suspect]
     Active Substance: PALBOCICLIB
     Dosage: TAKE 1 TABLET BY MOUTH ONCE DAILY WITH OR WITHOUT FOOD FOR 21 DAYS FOLLOWED BY 7 DAYS OFF TREATMENT
     Route: 048
  3. IBRANCE [Suspect]
     Active Substance: PALBOCICLIB
     Dosage: 100 MG, CYCLIC (1 TABLET X 21 DAYS ON, 7 DAYS OFF)
     Route: 048

REACTIONS (12)
  - Type 2 diabetes mellitus [Unknown]
  - Hypothyroidism [Unknown]
  - Agranulocytosis [Unknown]
  - Neoplasm progression [Unknown]
  - Blood cholesterol abnormal [Recovering/Resolving]
  - Mouth ulceration [Unknown]
  - Iron deficiency anaemia [Unknown]
  - Spinal pain [Unknown]
  - Essential hypertension [Unknown]
  - Depression [Unknown]
  - Gastrooesophageal reflux disease [Unknown]
  - Tongue blistering [Recovered/Resolved]

NARRATIVE: CASE EVENT DATE: 20200629
